FAERS Safety Report 11205921 (Version 2)
Quarter: 2015Q3

REPORT INFORMATION
  Report Type: Spontaneous
  Country: UA (occurrence: UA)
  Receive Date: 20150622
  Receipt Date: 20150730
  Transmission Date: 20151125
  Serious: Yes (Hospitalization, Other)
  Sender: FDA-Public Use
  Company Number: UA-TEVA-571095ISR

PATIENT
  Age: 34 Year
  Sex: Female

DRUGS (7)
  1. INTERFERON A2-B [Concomitant]
     Dosage: 1000000 IU (INTERNATIONAL UNIT) DAILY;
     Route: 054
  2. EPOETIN-BETA [Concomitant]
     Indication: ANAEMIA
     Dosage: TOTAL DOSE FOR ENTIRE FOLLOW-UP PERIOD 26000 IU
  3. FILGRASTIM [Suspect]
     Active Substance: FILGRASTIM
     Indication: LEUKOPENIA
     Dosage: TOTAL DOSE 60000000 IU
  4. SPIRONOLACTONE. [Concomitant]
     Active Substance: SPIRONOLACTONE
     Dosage: 100 MILLIGRAM DAILY;
  5. ELTROMBOPAG [Concomitant]
     Active Substance: ELTROMBOPAG
     Dosage: TOTAL DOSE 750 MG
  6. ADEMETIONINE [Concomitant]
     Active Substance: ADEMETIONINE
     Dosage: 1200 MILLIGRAM DAILY;
  7. URSODEOXYCHOLIC ACID [Concomitant]
     Active Substance: URSODIOL
     Dosage: 500 MILLIGRAM DAILY;

REACTIONS (10)
  - Appendicitis [Unknown]
  - Dyspepsia [Unknown]
  - Cholelithiasis [Unknown]
  - Cholecystitis chronic [Unknown]
  - Cytopenia [Unknown]
  - Discomfort [Unknown]
  - Bone pain [Unknown]
  - Pruritus [Unknown]
  - Peritonitis [Unknown]
  - Cholecystitis acute [Unknown]

NARRATIVE: CASE EVENT DATE: 20130215
